FAERS Safety Report 7544957-9 (Version None)
Quarter: 2011Q2

REPORT INFORMATION
  Report Type: 
  Country: None (occurrence: None)
  Receive Date: 20110614
  Receipt Date: 20090416
  Transmission Date: 20111010
  Serious: Yes (Death, Other)
  Sender: FDA-Public Use
  Company Number: US-BAYER-200918360NA

PATIENT
  Age: 76 Year
  Sex: Male
  Weight: 68 kg

DRUGS (30)
  1. ZINACEF [Concomitant]
     Dosage: UNK
     Route: 042
     Dates: start: 20071103, end: 20071103
  2. LIDOCAINE [Concomitant]
     Dosage: 100 MG, UNK
     Route: 042
     Dates: start: 20071103, end: 20071103
  3. NEOSYNEPHRINE [Concomitant]
     Dosage: 10 MG, UNK
     Route: 042
     Dates: start: 20071103, end: 20071103
  4. ALTACE [Concomitant]
     Dosage: 10 MG, QD
     Route: 048
     Dates: start: 19930101, end: 20071213
  5. ACETYLSALICYLIC ACID SRT [Concomitant]
     Dosage: 81 MG, QD
     Route: 048
  6. PLATELETS [Concomitant]
     Dosage: 1 U, UNK
     Dates: start: 20071103
  7. RANITIDINE [Concomitant]
     Indication: GASTROOESOPHAGEAL REFLUX DISEASE
     Dosage: 300 MG, BID
     Route: 048
     Dates: start: 19940101, end: 20071213
  8. VERSED [Concomitant]
     Dosage: UNK
     Route: 042
     Dates: start: 20071103, end: 20071103
  9. REGLAN [Concomitant]
     Dosage: UNK
     Route: 042
     Dates: start: 20071103, end: 20071103
  10. FENTANYL [Concomitant]
     Dosage: UNK
     Route: 042
     Dates: start: 20071103, end: 20071103
  11. MAGNESIUM SULFATE [Concomitant]
     Dosage: 2000 MG, UNK
     Route: 042
     Dates: start: 20071103, end: 20071103
  12. SODIUM BICARBONATE [Concomitant]
     Dosage: 75 ML, UNK
     Route: 042
     Dates: start: 20071103, end: 20071103
  13. LOVASTATIN [Concomitant]
     Indication: BLOOD CHOLESTEROL INCREASED
     Dosage: 40 MG, QD
     Route: 048
     Dates: start: 19930101, end: 20071213
  14. TRASYLOL [Suspect]
     Indication: CORONARY ARTERY BYPASS
     Dosage: 1 ML, UNK
     Route: 042
     Dates: start: 20071103, end: 20071103
  15. FORANE [Concomitant]
     Dosage: 0.5%
     Dates: start: 20071103, end: 20071103
  16. SUCCINYLCHOLINE CHLORIDE [Concomitant]
     Dosage: UNK
     Route: 042
     Dates: start: 20071103, end: 20071103
  17. DOPAMINE HCL [Concomitant]
     Dosage: UNK
     Route: 042
     Dates: start: 20071103, end: 20071103
  18. HEPARIN [Concomitant]
     Dosage: 65, 000 UNITS, UNK
     Route: 042
     Dates: start: 20071103, end: 20071103
  19. MANNITOL [Concomitant]
     Dosage: 150 ML, UNK
     Route: 042
     Dates: start: 20071103, end: 20071103
  20. TRASYLOL [Suspect]
     Dosage: 200 ML CARDIOPULMONARY BYPASS PRIME
     Route: 042
     Dates: start: 20071103, end: 20071103
  21. ALBUMIN (HUMAN) [Concomitant]
     Dosage: 250 ML, UNK
     Route: 042
     Dates: start: 20071103, end: 20071103
  22. POTASSIUM CHLORIDE [Concomitant]
     Dosage: 60 MILLIEQUIVILANTS, UNK
     Route: 042
     Dates: start: 20071103, end: 20071103
  23. VICODIN [Concomitant]
     Indication: PAIN
     Dosage: 7.5/750 MG, 1 TAB Q6H PRN
     Route: 048
  24. DIPRIVAN [Concomitant]
     Dosage: UNK
     Route: 042
     Dates: start: 20071103, end: 20071103
  25. ZOFRAN [Concomitant]
     Dosage: 4 MG, UNK
     Route: 042
     Dates: start: 20071103, end: 20071103
  26. INSULIN [Concomitant]
     Dosage: 5 UNITS, UNK
     Route: 042
     Dates: start: 20071103, end: 20071103
  27. CALCIUM CHLORIDE [Concomitant]
     Dosage: 1 G, UNK
     Route: 042
     Dates: start: 20071103, end: 20071103
  28. TRASYLOL [Suspect]
     Dosage: 199 ML, UNK
     Route: 042
     Dates: start: 20071103, end: 20071103
  29. TRASYLOL [Suspect]
     Dosage: 50 ML/HOUR INFUSION, UNK
     Route: 042
     Dates: start: 20071103, end: 20071103
  30. PROTAMINE SULFATE [Concomitant]
     Dosage: UNK
     Route: 042
     Dates: start: 20071103, end: 20071103

REACTIONS (9)
  - INJURY [None]
  - PAIN [None]
  - DEPRESSION [None]
  - RENAL FAILURE [None]
  - DEATH [None]
  - ANXIETY [None]
  - UNEVALUABLE EVENT [None]
  - FEAR [None]
  - ANHEDONIA [None]
